FAERS Safety Report 12417053 (Version 1)
Quarter: 2016Q2

REPORT INFORMATION
  Report Type: Spontaneous
  Country: US (occurrence: US)
  Receive Date: 20160530
  Receipt Date: 20160530
  Transmission Date: 20160815
  Serious: No
  Sender: FDA-Public Use
  Company Number: US-PFIZER INC-2016232927

PATIENT
  Age: 74 Year
  Sex: Female
  Weight: 40 kg

DRUGS (12)
  1. VITAMIN B12 [Concomitant]
     Active Substance: CYANOCOBALAMIN
     Dosage: UNK
  2. BACTRIM [Concomitant]
     Active Substance: SULFAMETHOXAZOLE\TRIMETHOPRIM
     Indication: HEART TRANSPLANT
     Dosage: 1 DF, CYCLIC (400-80MG 1 TABLET MONDAY WEDNESDAY AND FRIDAY)
  3. ASPIRIN. [Concomitant]
     Active Substance: ASPIRIN
     Indication: HEART TRANSPLANT
     Dosage: 80 MG, 1X/DAY
     Route: 048
  4. CALCIUM PLUS VITAMIN D3 [Concomitant]
     Indication: OSTEOPENIA
     Dosage: 3 DF, 1X/DAY (CALCIUM CARBONATE 600MG, COLECALCIFEROL800 IU)
  5. ASA [Concomitant]
     Active Substance: ASPIRIN
     Dosage: UNK
  6. AZATHIOPRINE. [Concomitant]
     Active Substance: AZATHIOPRINE
     Indication: HEART TRANSPLANT REJECTION
     Dosage: 1 DF, DAILY
     Route: 048
  7. CITALOPRAM [Concomitant]
     Active Substance: CITALOPRAM HYDROBROMIDE
     Dosage: UNK
  8. PRAVASTATIN [Concomitant]
     Active Substance: PRAVASTATIN\PRAVASTATIN SODIUM
     Dosage: UNK
  9. RAPAMUNE [Suspect]
     Active Substance: SIROLIMUS
     Indication: HEART TRANSPLANT REJECTION
     Dosage: 4 MG, 1X/DAY
     Route: 048
     Dates: start: 201601
  10. CELEXA [Concomitant]
     Active Substance: CITALOPRAM HYDROBROMIDE
     Indication: MENTAL DISABILITY
     Dosage: 20 MG, 1X/DAY
     Route: 048
  11. PRAVACHOL [Concomitant]
     Active Substance: PRAVASTATIN SODIUM
     Indication: HEART TRANSPLANT
     Dosage: 20 MG, 1X/DAY
     Route: 048
  12. ALENDRONATE [Concomitant]
     Active Substance: ALENDRONATE SODIUM
     Dosage: UNK

REACTIONS (3)
  - Red blood cell count decreased [Not Recovered/Not Resolved]
  - Drug level fluctuating [Not Recovered/Not Resolved]
  - White blood cell count decreased [Not Recovered/Not Resolved]

NARRATIVE: CASE EVENT DATE: 201601
